FAERS Safety Report 9839885 (Version 1)
Quarter: 2014Q1

REPORT INFORMATION
  Report Type: Spontaneous
  Country: US (occurrence: US)
  Receive Date: 20140124
  Receipt Date: 20140124
  Transmission Date: 20141002
  Serious: Yes (Death)
  Sender: FDA-Public Use
  Company Number: US-AMGEN-USASP2014004627

PATIENT
  Age: 61 Year
  Sex: Female

DRUGS (2)
  1. NEUPOGEN [Suspect]
     Indication: BREAST CANCER
     Dosage: UNK
     Route: 065
  2. ARANESP [Suspect]
     Indication: ANAEMIA
     Dosage: UNK
     Route: 065

REACTIONS (1)
  - Breast cancer [Fatal]
